FAERS Safety Report 4527078-9 (Version None)
Quarter: 2004Q4

REPORT INFORMATION
  Report Type: 
  Country: None (occurrence: None)
  Receive Date: 20041129
  Receipt Date: 20040406
  Transmission Date: 20050328
  Serious: Yes (Hospitalization)
  Sender: FDA-Public Use
  Company Number: USA040260154

PATIENT
  Age: 19 Year
  Sex: Male

DRUGS (1)
  1. ZYPREXA [Suspect]
     Indication: TOURETTE'S DISORDER
     Dosage: 7.5 MG/3 DAY
     Dates: start: 20000504, end: 20010401

REACTIONS (1)
  - GYNAECOMASTIA [None]
